FAERS Safety Report 5235656-7 (Version None)
Quarter: 2007Q1

REPORT INFORMATION
  Report Type: 
  Country: None (occurrence: None)
  Receive Date: 20070212
  Receipt Date: 20070206
  Transmission Date: 20070707
  Serious: Yes (Other)
  Sender: FDA-Public Use
  Company Number: GR-GLAXOSMITHKLINE-B0454497A

PATIENT
  Age: 68 Year
  Sex: Female

DRUGS (7)
  1. AUGMENTIN '125' [Suspect]
     Route: 042
     Dates: start: 20061216, end: 20061216
  2. ONE-ALPHA [Concomitant]
  3. ISCOVER [Concomitant]
  4. GERIATRIC [Concomitant]
  5. FILICINE [Concomitant]
  6. LONARID [Concomitant]
  7. PANTOPRAZOLE SODIUM SESQUIHYDRATE [Concomitant]

REACTIONS (5)
  - DYSPNOEA [None]
  - HYPERHIDROSIS [None]
  - HYPOTENSION [None]
  - LARYNGOSPASM [None]
  - PHARYNGOLARYNGEAL PAIN [None]
